FAERS Safety Report 6996415-8 (Version None)
Quarter: 2010Q3

REPORT INFORMATION
  Report Type: 
  Country: None (occurrence: None)
  Receive Date: 20100918
  Receipt Date: 20090306
  Transmission Date: 20110219
  Serious: No
  Sender: FDA-Public Use
  Company Number: US-WYE-H08502809

PATIENT
  Sex: Female

DRUGS (3)
  1. EFFEXOR XR [Suspect]
     Indication: DEPRESSION
     Route: 048
     Dates: start: 20020101, end: 20060101
  2. EFFEXOR XR [Suspect]
     Indication: FIBROMYALGIA
  3. MULTI-VITAMINS [Concomitant]

REACTIONS (3)
  - DISTURBANCE IN ATTENTION [None]
  - FEELING ABNORMAL [None]
  - UNEVALUABLE EVENT [None]
